FAERS Safety Report 19627831 (Version 3)
Quarter: 2021Q3

REPORT INFORMATION
  Report Type: Report from Study
  Country: BE (occurrence: BE)
  Receive Date: 20210728
  Receipt Date: 20210812
  Transmission Date: 20211014
  Serious: Yes (Hospitalization)
  Sender: FDA-Public Use
  Company Number: BE-PFIZER INC-202100923836

PATIENT
  Age: 65 Year
  Weight: 86 kg

DRUGS (12)
  1. PACLITAXEL. [Suspect]
     Active Substance: PACLITAXEL
     Indication: BLADDER TRANSITIONAL CELL CARCINOMA
     Dosage: 160 MG
     Route: 042
     Dates: start: 20210120
  2. AVELUMAB [Suspect]
     Active Substance: AVELUMAB
     Dosage: 870 MG
     Route: 042
     Dates: start: 20210310
  3. BISOPROLOL [Concomitant]
     Active Substance: BISOPROLOL
     Dosage: 10 MG, 1X/DAY
  4. SPIRONOLACTONE. [Concomitant]
     Active Substance: SPIRONOLACTONE
     Dosage: 25 MG, 1X/DAY
  5. FUROSEMIDE. [Concomitant]
     Active Substance: FUROSEMIDE
     Dosage: 40 MG
  6. PACLITAXEL. [Suspect]
     Active Substance: PACLITAXEL
     Dosage: 160 MG
     Route: 042
     Dates: start: 20210310
  7. ATORVASTATIN [Concomitant]
     Active Substance: ATORVASTATIN
     Dosage: 40 MG, 1X/DAY
  8. CELIPROLOL [Concomitant]
     Active Substance: CELIPROLOL
     Dosage: 20 MG, 1X/DAY
  9. AVELUMAB [Suspect]
     Active Substance: AVELUMAB
     Indication: BLADDER TRANSITIONAL CELL CARCINOMA
     Dosage: 870 MG
     Route: 042
     Dates: start: 20210120
  10. GEMCITABINE HYDROCHLORIDE. [Suspect]
     Active Substance: GEMCITABINE HYDROCHLORIDE
     Dosage: 3000 MG
     Route: 042
     Dates: start: 20210310
  11. KARDEGIC [Concomitant]
     Active Substance: ASPIRIN DL-LYSINE
     Dosage: 75 MG, 1X/DAY
  12. GEMCITABINE HYDROCHLORIDE. [Suspect]
     Active Substance: GEMCITABINE HYDROCHLORIDE
     Indication: BLADDER TRANSITIONAL CELL CARCINOMA
     Dosage: 3000 MG
     Route: 042
     Dates: start: 20210120

REACTIONS (2)
  - Anastomotic fistula [Recovered/Resolved]
  - Post procedural sepsis [Recovered/Resolved]

NARRATIVE: CASE EVENT DATE: 20210419
